FAERS Safety Report 9260663 (Version 1)
Quarter: 2013Q2

REPORT INFORMATION
  Report Type: Spontaneous
  Country: US (occurrence: US)
  Receive Date: 20130429
  Receipt Date: 20130429
  Transmission Date: 20140414
  Serious: Yes (Other)
  Sender: FDA-Public Use
  Company Number: US-BAYER-2013-052525

PATIENT
  Age: 15 Year
  Sex: Female

DRUGS (2)
  1. GIANVI [Suspect]
     Indication: ACNE
     Dosage: UNK
     Dates: end: 20121018
  2. CYMBALTA [Concomitant]
     Indication: COMPLEX REGIONAL PAIN SYNDROME

REACTIONS (6)
  - Metrorrhagia [None]
  - Migraine [None]
  - Visual impairment [None]
  - Papilloedema [None]
  - Blood pressure increased [None]
  - Blindness [None]
